FAERS Safety Report 16939454 (Version 1)
Quarter: 2019Q4

REPORT INFORMATION
  Report Type: Spontaneous
  Country: US (occurrence: US)
  Receive Date: 20191021
  Receipt Date: 20191021
  Transmission Date: 20200122
  Serious: Yes (Death, Hospitalization)
  Sender: FDA-Public Use
  Company Number: US-TEVA-2019-US-1125492

PATIENT
  Age: 76 Year
  Sex: Female

DRUGS (1)
  1. ENOXAPARIN SODIUM. [Suspect]
     Active Substance: ENOXAPARIN SODIUM
     Indication: PULMONARY EMBOLISM
     Dosage: RECEIVED TOTAL FIVE DOSES OF SC ENOXAPARIN SODIUM IN ANTERIOR ABDOMINAL WALL.
     Route: 058

REACTIONS (2)
  - Shock haemorrhagic [Fatal]
  - Spontaneous haematoma [Fatal]
